FAERS Safety Report 7322727-4 (Version None)
Quarter: 2011Q1

REPORT INFORMATION
  Report Type: 
  Country: None (occurrence: None)
  Receive Date: 20110215
  Receipt Date: 20110214
  Transmission Date: 20110831
  Serious: Yes (Other)
  Sender: FDA-Public Use
  Company Number: 2010SP058621

PATIENT
  Age: 5 Year
  Sex: Male
  Weight: 21 kg

DRUGS (5)
  1. TOBREX [Concomitant]
  2. NASONEX [Suspect]
     Indication: RHINITIS
     Dosage: QD;NAS
     Route: 045
     Dates: start: 20101028
  3. PREDSIM [Concomitant]
  4. CLARITIN-D [Suspect]
     Indication: RHINITIS
     Dosage: 4 ML;Q12H;PO
     Route: 048
     Dates: start: 20101028, end: 20101028
  5. AMOXICILLIN [Concomitant]

REACTIONS (8)
  - HYPERHIDROSIS [None]
  - OFF LABEL USE [None]
  - OVERDOSE [None]
  - EPISTAXIS [None]
  - RHINORRHOEA [None]
  - PALLOR [None]
  - SOMNOLENCE [None]
  - BLOOD PRESSURE DECREASED [None]
